FAERS Safety Report 23444717 (Version 2)
Quarter: 2024Q2

REPORT INFORMATION
  Report Type: Spontaneous
  Country: US (occurrence: US)
  Receive Date: 20240125
  Receipt Date: 20240409
  Transmission Date: 20240716
  Serious: No
  Sender: FDA-Public Use
  Company Number: US-KARYOPHARM-2024KPT000026

PATIENT

DRUGS (24)
  1. XPOVIO [Suspect]
     Active Substance: SELINEXOR
     Indication: Plasma cell myeloma
     Dosage: 60 MG, WEEKLY
     Route: 048
     Dates: start: 202312
  2. XPOVIO [Suspect]
     Active Substance: SELINEXOR
     Dosage: 40 MG, 2X/WEEK
     Route: 048
     Dates: start: 20240102, end: 202403
  3. LEVOTHYROXINE [Concomitant]
     Active Substance: LEVOTHYROXINE\LEVOTHYROXINE SODIUM
  4. LISINOPRIL [Concomitant]
     Active Substance: LISINOPRIL
  5. CRESTOR [Concomitant]
     Active Substance: ROSUVASTATIN CALCIUM
  6. RYBELSUS [Concomitant]
     Active Substance: SEMAGLUTIDE
  7. AMITRIPTYLINE [Concomitant]
     Active Substance: AMITRIPTYLINE
  8. COREG [Concomitant]
     Active Substance: CARVEDILOL
  9. DEXAMETHASONE [Concomitant]
     Active Substance: DEXAMETHASONE
  10. GLIMEPIRIDE [Concomitant]
     Active Substance: GLIMEPIRIDE
  11. KLOR-CON M20 [Concomitant]
     Active Substance: POTASSIUM CHLORIDE
  12. LASIX [Concomitant]
     Active Substance: FUROSEMIDE
  13. LENALIDOMIDE [Concomitant]
     Active Substance: LENALIDOMIDE
  14. METHYLPREDNISOLONE ACETATE [Concomitant]
     Active Substance: METHYLPREDNISOLONE ACETATE
  15. ONDANSETRON [Concomitant]
     Active Substance: ONDANSETRON
  16. PROMETHAZINE [Concomitant]
     Active Substance: PROMETHAZINE HYDROCHLORIDE
  17. REMERON [Concomitant]
     Active Substance: MIRTAZAPINE
  18. VALTREX [Concomitant]
     Active Substance: VALACYCLOVIR HYDROCHLORIDE
  19. ZYPREXA [Concomitant]
     Active Substance: OLANZAPINE
  20. HYDROCHLOROTHIAZIDE [Concomitant]
     Active Substance: HYDROCHLOROTHIAZIDE
  21. OXYCODONE [Concomitant]
     Active Substance: OXYCODONE\OXYCODONE HYDROCHLORIDE
  22. TIZANIDINE [Concomitant]
     Active Substance: TIZANIDINE
  23. LEVOTHYROXINE SODIUM [Concomitant]
     Active Substance: LEVOTHYROXINE SODIUM
  24. POMALYST [Concomitant]
     Active Substance: POMALIDOMIDE

REACTIONS (6)
  - Blood glucose increased [Unknown]
  - Illness [Unknown]
  - Cytopenia [Unknown]
  - Nausea [Unknown]
  - Decreased appetite [Unknown]
  - Dehydration [Not Recovered/Not Resolved]

NARRATIVE: CASE EVENT DATE: 20240101
